FAERS Safety Report 7380894-0 (Version None)
Quarter: 2011Q1

REPORT INFORMATION
  Report Type: 
  Country: None (occurrence: None)
  Receive Date: 20110329
  Receipt Date: 20110316
  Transmission Date: 20110831
  Serious: Yes (Hospitalization)
  Sender: FDA-Public Use
  Company Number: PHHO2011US02921

PATIENT
  Sex: Female
  Weight: 64 kg

DRUGS (5)
  1. AFINITOR [Suspect]
     Indication: GLIOBLASTOMA
     Dosage: 70 MG / WEEK
     Route: 048
     Dates: start: 20101213
  2. BACTRIM [Concomitant]
  3. RADIATION THERAPY [Concomitant]
  4. TEMOZOLOMIDE [Suspect]
     Indication: GLIOBLASTOMA
     Dosage: 115 MG DAILY
     Dates: start: 20101213
  5. DEXAMETHASONE [Concomitant]

REACTIONS (5)
  - FEBRILE NEUTROPENIA [None]
  - COUGH [None]
  - PNEUMONIA [None]
  - LUNG INFILTRATION [None]
  - LETHARGY [None]
